FAERS Safety Report 15365429 (Version 4)
Quarter: 2018Q4

REPORT INFORMATION
  Report Type: Spontaneous
  Country: US (occurrence: US)
  Receive Date: 20180910
  Receipt Date: 20181207
  Transmission Date: 20190204
  Serious: No
  Sender: FDA-Public Use
  Company Number: US-PFIZER INC-2018363050

PATIENT
  Age: 62 Year
  Sex: Male

DRUGS (1)
  1. LYRICA [Suspect]
     Active Substance: PREGABALIN
     Dosage: 100 MG, THRICE DAILY

REACTIONS (1)
  - Limb discomfort [Unknown]

NARRATIVE: CASE EVENT DATE: 20180801
